FAERS Safety Report 24361412 (Version 1)
Quarter: 2024Q3

REPORT INFORMATION
  Report Type: Spontaneous
  Country: JP (occurrence: JP)
  Receive Date: 20240925
  Receipt Date: 20240925
  Transmission Date: 20241016
  Serious: Yes (Death, Hospitalization, Other)
  Sender: AMGEN
  Company Number: JP-KYOWAKIRIN-2024KK015286

PATIENT
  Age: 10 Decade
  Sex: Female

DRUGS (2)
  1. CINACALCET HYDROCHLORIDE [Suspect]
     Active Substance: CINACALCET HYDROCHLORIDE
     Indication: Product used for unknown indication
     Dosage: UNK
     Route: 048
  2. EVOCALCET [Suspect]
     Active Substance: EVOCALCET
     Indication: Hyperparathyroidism primary
     Dosage: 1 MILLIGRAM, QD, A HALF TABLET OF ORKEDIA TABLETS 2MG DUE TO DIFFICULTY TAKING THE DRUG
     Route: 048
     Dates: start: 20240611, end: 20240705

REACTIONS (4)
  - Death [Fatal]
  - Hospitalisation [Unknown]
  - Blood calcium increased [Recovered/Resolved]
  - Off label use [Unknown]

NARRATIVE: CASE EVENT DATE: 20240611
